FAERS Safety Report 16960792 (Version 1)
Quarter: 2019Q4

REPORT INFORMATION
  Report Type: Spontaneous
  Country: US (occurrence: US)
  Receive Date: 20190906
  Receipt Date: 20190906
  Transmission Date: 20200122
  Serious: Yes (Disabling)
  Sender: FDA-Public Use
  Company Number: None

PATIENT
  Age: 66 Year
  Sex: Female
  Weight: 63.05 kg

DRUGS (4)
  1. NP THYROID [Concomitant]
     Active Substance: LEVOTHYROXINE\LIOTHYRONINE
  2. MALATHION. [Suspect]
     Active Substance: MALATHION
     Indication: LICE INFESTATION
     Dosage: ?          QUANTITY:4 OZS;OTHER ROUTE:SCALP?
     Dates: start: 20190809, end: 20190809
  3. HERBS [Concomitant]
     Active Substance: HERBALS
  4. VITAMIN B COMPLEX [Concomitant]
     Active Substance: CYANOCOBALAMIN\DEXPANTHENOL\NIACINAMIDE\PYRIDOXINE HYDROCHLORIDE\RIBOFLAVIN 5^-PHOSPHATE SODIUM\THIAMINE HYDROCHLORIDE\VITAMIN B COMPLEX

REACTIONS (1)
  - Thermal burn [None]

NARRATIVE: CASE EVENT DATE: 20190809
